FAERS Safety Report 7656060-8 (Version None)
Quarter: 2011Q3

REPORT INFORMATION
  Report Type: 
  Country: None (occurrence: None)
  Receive Date: 20110804
  Receipt Date: 20110722
  Transmission Date: 20111222
  Serious: Yes (Other)
  Sender: FDA-Public Use
  Company Number: CA-ELI_LILLY_AND_COMPANY-CA201107006138

PATIENT

DRUGS (14)
  1. ZYPREXA ZYDIS [Suspect]
     Indication: BIPOLAR II DISORDER
     Dosage: 10 MG, BID
  2. METHYLPHENIDATE [Concomitant]
  3. SEROQUEL [Concomitant]
  4. CLONAZEPAM [Concomitant]
  5. LOXAPINE HCL [Concomitant]
  6. DIVALPROEX SODIUM [Concomitant]
  7. ZANTAC [Concomitant]
  8. PANTOLOC                           /01263202/ [Concomitant]
  9. ZYPREXA [Suspect]
     Indication: BIPOLAR II DISORDER
     Dosage: 10 MG, QD
  10. VALPROIC ACID [Concomitant]
  11. COGENTIN [Concomitant]
  12. ALTACE [Concomitant]
  13. CITALOPRAM [Concomitant]
  14. LITHIUM CARBONATE [Concomitant]

REACTIONS (5)
  - RETINOPATHY HYPERTENSIVE [None]
  - DYSLIPIDAEMIA [None]
  - WEIGHT INCREASED [None]
  - ALANINE AMINOTRANSFERASE INCREASED [None]
  - DIABETES MELLITUS [None]
